FAERS Safety Report 17377102 (Version 1)
Quarter: 2020Q1

REPORT INFORMATION
  Report Type: Spontaneous
  Country: US (occurrence: US)
  Receive Date: 20200206
  Receipt Date: 20200206
  Transmission Date: 20200409
  Serious: No
  Sender: FDA-Public Use
  Company Number: US-JNJFOC-20200151610

PATIENT
  Age: 25 Year
  Sex: Male
  Weight: 91.25 kg

DRUGS (5)
  1. CLONIDINE. [Concomitant]
     Active Substance: CLONIDINE
  2. SERTRALINE [Concomitant]
     Active Substance: SERTRALINE HYDROCHLORIDE
  3. BENZTROPINE. [Concomitant]
     Active Substance: BENZTROPINE
  4. INVEGA SUSTENNA [Suspect]
     Active Substance: PALIPERIDONE PALMITATE
     Indication: PRODUCT USED FOR UNKNOWN INDICATION
     Route: 030
  5. ABILIFY [Concomitant]
     Active Substance: ARIPIPRAZOLE

REACTIONS (7)
  - Delusion [Unknown]
  - Hypomania [Unknown]
  - Metabolic disorder [Unknown]
  - Irritability [Unknown]
  - Mania [Unknown]
  - Paranoia [Unknown]
  - Sleep disorder [Unknown]
